FAERS Safety Report 7365581-7 (Version None)
Quarter: 2011Q1

REPORT INFORMATION
  Report Type: 
  Country: None (occurrence: None)
  Receive Date: 20110322
  Receipt Date: 20110314
  Transmission Date: 20110831
  Serious: Yes (Congenital Anomaly, Other)
  Sender: FDA-Public Use
  Company Number: US-TEVA-271656USA

PATIENT

DRUGS (3)
  1. PHENTERMINE HCL [Suspect]
     Indication: WEIGHT DECREASED
     Route: 064
     Dates: start: 20100101
  2. FOLIC ACID [Concomitant]
     Route: 064
  3. PRENATAL VITAMINS                  /01549301/ [Concomitant]
     Route: 064

REACTIONS (1)
  - CONGENITAL SPINAL CORD ANOMALY [None]
